FAERS Safety Report 8502426-3 (Version None)
Quarter: 2012Q3

REPORT INFORMATION
  Report Type: 
  Country: None (occurrence: None)
  Receive Date: 20120711
  Receipt Date: 20120708
  Transmission Date: 20120928
  Serious: Yes (Death, Hospitalization, Disabling)
  Sender: FDA-Public Use
  Company Number: PHHY2012MX058815

PATIENT
  Sex: Female

DRUGS (4)
  1. DIOVAN HCT [Suspect]
     Indication: HYPERTENSION
     Dosage: 1 DF (80/12.5 MG), ONCE A DAY
     Dates: start: 20090101
  2. INSULIN GARLINE [Concomitant]
     Dosage: 20 IU, DAILY
  3. METOPROLOL SUCCINATE [Concomitant]
     Dosage: 0.5 DF, Q12H
  4. PENTOXIFYLLINE [Concomitant]
     Indication: COAGULOPATHY
     Dosage: UNK UKN, ONCE A DAY

REACTIONS (6)
  - HYPERTENSION [None]
  - LACUNAR INFARCTION [None]
  - COMMUNICATION DISORDER [None]
  - DIABETES MELLITUS [None]
  - GENERAL PHYSICAL HEALTH DETERIORATION [None]
  - SPEECH DISORDER [None]
